FAERS Safety Report 6412582-9 (Version None)
Quarter: 2009Q4

REPORT INFORMATION
  Report Type: 
  Country: None (occurrence: None)
  Receive Date: 20091023
  Receipt Date: 20091009
  Transmission Date: 20100525
  Serious: Yes (Other)
  Sender: FDA-Public Use
  Company Number: PHEH2009US13462

PATIENT
  Sex: Female

DRUGS (6)
  1. TEKTURNA [Suspect]
     Dosage: 150 MG, QD
     Dates: start: 20090930
  2. TEKTURNA [Suspect]
     Dosage: HALF A 150 MG TAB
     Dates: start: 20091008
  3. COUMADIN [Concomitant]
  4. ALTACE [Concomitant]
  5. POTASSIUM CHLORIDE [Concomitant]
  6. DIURETICS [Concomitant]

REACTIONS (8)
  - BLOOD PRESSURE ABNORMAL [None]
  - DRUG INEFFECTIVE [None]
  - HYPERTENSION [None]
  - INSOMNIA [None]
  - MALAISE [None]
  - PALPITATIONS [None]
  - TREMOR [None]
  - WRONG TECHNIQUE IN DRUG USAGE PROCESS [None]
